FAERS Safety Report 20696536 (Version 1)
Quarter: 2022Q2

REPORT INFORMATION
  Report Type: Other
  Country: US (occurrence: US)
  Receive Date: 20220411
  Receipt Date: 20220411
  Transmission Date: 20220721
  Serious: No
  Sender: FDA-Public Use
  Company Number: US-TRAVERE THERAPEUTICS, INC.-2021RTN00175

PATIENT
  Age: 20 Year
  Sex: Male

DRUGS (4)
  1. CHOLIC ACID [Suspect]
     Active Substance: CHOLIC ACID
     Indication: Refsum^s disease
     Dosage: 200 MG, 2X/DAY
     Route: 048
     Dates: start: 20160720, end: 20160826
  2. CHOLIC ACID [Suspect]
     Active Substance: CHOLIC ACID
     Dosage: 50 MG, 2X/DAY
     Route: 048
     Dates: start: 2016
  3. CHOLIC ACID [Suspect]
     Active Substance: CHOLIC ACID
     Dosage: 50 MG, 2X/DAY (ONE IN AM AND ONE IN PM)
     Route: 048
     Dates: start: 20211007, end: 20211009
  4. CHOLIC ACID [Suspect]
     Active Substance: CHOLIC ACID
     Dosage: 50 MG, TWICE
     Route: 048
     Dates: start: 20211010, end: 20211010

REACTIONS (4)
  - Intentional product use issue [Not Recovered/Not Resolved]
  - Retching [Recovered/Resolved]
  - Agitation [Unknown]
  - Abdominal pain [Recovered/Resolved]

NARRATIVE: CASE EVENT DATE: 20211007
